FAERS Safety Report 13286220 (Version 3)
Quarter: 2017Q1

REPORT INFORMATION
  Report Type: Spontaneous
  Country: US (occurrence: US)
  Receive Date: 20170302
  Receipt Date: 20170329
  Transmission Date: 20170428
  Serious: Yes (Other)
  Sender: FDA-Public Use
  Company Number: US-JNJFOC-20170224722

PATIENT
  Age: 71 Year
  Sex: Male
  Weight: 96.62 kg

DRUGS (12)
  1. TOPROL XL [Concomitant]
     Active Substance: METOPROLOL SUCCINATE
     Route: 048
  2. ALDACTONE [Concomitant]
     Active Substance: SPIRONOLACTONE
     Route: 048
  3. XARELTO [Suspect]
     Active Substance: RIVAROXABAN
     Indication: CEREBROVASCULAR ACCIDENT PROPHYLAXIS
     Route: 048
     Dates: start: 20160926, end: 20170223
  4. OXYCODONE [Concomitant]
     Active Substance: OXYCODONE
     Dosage: EXPIRED
     Route: 048
  5. XARELTO [Suspect]
     Active Substance: RIVAROXABAN
     Indication: CARDIOMYOPATHY
     Route: 048
     Dates: start: 20160926, end: 20170223
  6. ATORVASTATIN [Concomitant]
     Active Substance: ATORVASTATIN
     Route: 048
  7. LEVITRA [Concomitant]
     Active Substance: VARDENAFIL HYDROCHLORIDE TRIHYDRATE
     Route: 065
  8. XARELTO [Suspect]
     Active Substance: RIVAROXABAN
     Indication: ATRIAL FIBRILLATION
     Route: 048
     Dates: start: 20160926, end: 20170223
  9. GLUCOPHAGE [Concomitant]
     Active Substance: METFORMIN HYDROCHLORIDE
     Route: 048
  10. OXYCODONE [Concomitant]
     Active Substance: OXYCODONE
     Route: 048
  11. ZYLOPRIM [Concomitant]
     Active Substance: ALLOPURINOL
     Route: 065
  12. COLCRYS [Concomitant]
     Active Substance: COLCHICINE
     Route: 065

REACTIONS (3)
  - Sports injury [Recovering/Resolving]
  - Humerus fracture [Recovering/Resolving]
  - Haemorrhage [Unknown]

NARRATIVE: CASE EVENT DATE: 20170223
